FAERS Safety Report 21786199 (Version 1)
Quarter: 2022Q4

REPORT INFORMATION
  Report Type: Other
  Country: ES (occurrence: ES)
  Receive Date: 20221228
  Receipt Date: 20221228
  Transmission Date: 20230113
  Serious: Yes (Other)
  Sender: FDA-Public Use
  Company Number: ES-Bion-010962

PATIENT
  Age: 61 Year
  Sex: Female

DRUGS (1)
  1. VALPROIC ACID [Suspect]
     Active Substance: VALPROIC ACID
     Indication: Bipolar II disorder

REACTIONS (1)
  - Neutropenia [Recovered/Resolved]
